FAERS Safety Report 20767266 (Version 5)
Quarter: 2022Q2

REPORT INFORMATION
  Report Type: Spontaneous
  Country: US (occurrence: US)
  Receive Date: 20220429
  Receipt Date: 20220515
  Transmission Date: 20220721
  Serious: Yes (Other)
  Sender: FDA-Public Use
  Company Number: US-JNJFOC-20220441158

PATIENT
  Age: 62 Year
  Sex: Male
  Weight: 62.652 kg

DRUGS (2)
  1. STELARA [Suspect]
     Active Substance: USTEKINUMAB
     Indication: Crohn^s disease
     Dosage: 90.00 MG/ML
     Route: 058
     Dates: start: 2017
  2. STELARA [Suspect]
     Active Substance: USTEKINUMAB

REACTIONS (7)
  - Spinal fracture [Unknown]
  - Road traffic accident [Unknown]
  - Crohn^s disease [Unknown]
  - Product dose omission issue [Unknown]
  - Injection site urticaria [Recovered/Resolved]
  - Accidental exposure to product [Unknown]
  - Needle issue [Unknown]

NARRATIVE: CASE EVENT DATE: 20220420
